FAERS Safety Report 11360246 (Version 1)
Quarter: 2015Q3

REPORT INFORMATION
  Report Type: Report from Study
  Country: US (occurrence: US)
  Receive Date: 20150810
  Receipt Date: 20150810
  Transmission Date: 20151125
  Serious: No
  Sender: FDA-Public Use
  Company Number: PHEH2014US018092

PATIENT
  Sex: Female

DRUGS (1)
  1. EXTAVIA [Suspect]
     Active Substance: INTERFERON BETA-1B
     Indication: MULTIPLE SCLEROSIS
     Dosage: 0.25 MG, QOD
     Route: 058
     Dates: start: 20131218

REACTIONS (5)
  - Injection site erythema [Unknown]
  - Injection site haemorrhage [Unknown]
  - Skin discolouration [Unknown]
  - Injection site bruising [Unknown]
  - Urticaria [Unknown]
